FAERS Safety Report 11424553 (Version 1)
Quarter: 2015Q3

REPORT INFORMATION
  Report Type: Spontaneous
  Country: US (occurrence: US)
  Receive Date: 20150827
  Receipt Date: 20150827
  Transmission Date: 20151125
  Serious: Yes (Hospitalization)
  Sender: FDA-Public Use
  Company Number: US-FRI-1000079129

PATIENT
  Age: 76 Year
  Sex: Male
  Weight: 95.2 kg

DRUGS (16)
  1. LEXAPRO [Suspect]
     Active Substance: ESCITALOPRAM OXALATE
     Indication: DEPRESSION
     Dosage: 20MG
     Route: 048
     Dates: start: 20150402, end: 20150404
  2. TAFAMIDIS MEGLUMINE (DOUBLE-BLIND) [Suspect]
     Active Substance: TAFAMIDIS MEGLUMINE
     Indication: CARDIOMYOPATHY
  3. VITAMIN C [Concomitant]
     Active Substance: ASCORBIC ACID
     Dates: start: 1995
  4. PSYLLIUM HUSK [Concomitant]
     Active Substance: PSYLLIUM HUSK
     Dates: start: 1995
  5. GLUCOSAMINE CHONDROITIN [Concomitant]
     Active Substance: CHONDROITIN SULFATE (BOVINE)\GLUCOSAMINE HYDROCHLORIDE
     Dates: start: 2005
  6. AMBIEN [Suspect]
     Active Substance: ZOLPIDEM TARTRATE
     Indication: INSOMNIA
     Route: 048
     Dates: start: 20150402, end: 20150406
  7. BUPROPION. [Concomitant]
     Active Substance: BUPROPION
     Dates: start: 20150725
  8. VITAMIN D3 [Concomitant]
     Active Substance: CHOLECALCIFEROL
     Dates: start: 2012
  9. FUROSEMIDE. [Concomitant]
     Active Substance: FUROSEMIDE
     Dates: start: 20150312
  10. ACETAMINOPHEN. [Concomitant]
     Active Substance: ACETAMINOPHEN
     Dates: start: 201403
  11. LORATADINE. [Concomitant]
     Active Substance: LORATADINE
     Dates: start: 2010
  12. CARVEDILOL. [Concomitant]
     Active Substance: CARVEDILOL
     Dates: start: 20141219
  13. TRAZODONE [Concomitant]
     Active Substance: TRAZODONE HYDROCHLORIDE
     Dates: start: 201408
  14. APIXABAN [Concomitant]
     Active Substance: APIXABAN
     Dates: start: 20141031
  15. CELEBREX [Concomitant]
     Active Substance: CELECOXIB
     Dates: start: 201209
  16. LACTOBACILLUS ACIDOPHILUS [Concomitant]
     Active Substance: LACTOBACILLUS ACIDOPHILUS
     Dates: start: 2005

REACTIONS (2)
  - Encephalopathy [Recovered/Resolved]
  - Hyponatraemia [Recovered/Resolved]

NARRATIVE: CASE EVENT DATE: 20150406
